FAERS Safety Report 25203088 (Version 1)
Quarter: 2025Q2

REPORT INFORMATION
  Report Type: Spontaneous
  Country: US (occurrence: None)
  Receive Date: 20250415
  Receipt Date: 20250415
  Transmission Date: 20250716
  Serious: Yes (Other)
  Sender: FDA-CTU
  Company Number: None

PATIENT
  Age: 63 Year
  Sex: Female
  Weight: 76.5 kg

DRUGS (10)
  1. ICOSAPENT ETHYL [Suspect]
     Active Substance: ICOSAPENT ETHYL
     Indication: Blood cholesterol
     Dosage: OTHER QUANTITY : 2 CAPSULE(S);?FREQUENCY : AT BEDTIME;?
     Route: 048
  2. SYNJARDY [Concomitant]
     Active Substance: EMPAGLIFLOZIN\METFORMIN HYDROCHLORIDE
  3. TRULICITY [Concomitant]
     Active Substance: DULAGLUTIDE
  4. TRESIBA [Concomitant]
     Active Substance: INSULIN DEGLUDEC
  5. Hydroxicine [Concomitant]
  6. FYAVOLV [Concomitant]
     Active Substance: ETHINYL ESTRADIOL\NORETHINDRONE ACETATE
  7. COLESEVELAM [Concomitant]
     Active Substance: COLESEVELAM
  8. LOSARTAN [Concomitant]
     Active Substance: LOSARTAN
  9. ESCITALOPRAM [Concomitant]
     Active Substance: ESCITALOPRAM OXALATE
  10. OMEPRAZOLE [Concomitant]
     Active Substance: OMEPRAZOLE

REACTIONS (3)
  - Neuralgia [None]
  - Back pain [None]
  - Pain in extremity [None]

NARRATIVE: CASE EVENT DATE: 20241213
